FAERS Safety Report 15265156 (Version 1)
Quarter: 2018Q3

REPORT INFORMATION
  Report Type: Spontaneous
  Country: US (occurrence: US)
  Receive Date: 20180723
  Receipt Date: 20180723
  Transmission Date: 20181010
  Serious: Yes (Other)
  Sender: FDA-Public Use
  Company Number: None

PATIENT
  Age: 32 Year
  Sex: Female
  Weight: 86.4 kg

DRUGS (1)
  1. CIPORFLAXIN 500 [Suspect]
     Active Substance: CIPROFLOXACIN
     Indication: URINARY TRACT INFECTION
     Dosage: ?          QUANTITY:1 TABLET(S);?
     Dates: start: 20180224

REACTIONS (9)
  - Depression [None]
  - Decreased appetite [None]
  - Anxiety [None]
  - Cardiac flutter [None]
  - Insomnia [None]
  - Visual impairment [None]
  - Fall [None]
  - Tinnitus [None]
  - Pain in extremity [None]

NARRATIVE: CASE EVENT DATE: 20180226
